FAERS Safety Report 8829408 (Version 1)
Quarter: 2012Q4

REPORT INFORMATION
  Report Type: 
  Country: US (occurrence: US)
  Receive Date: 20121008
  Receipt Date: 20121008
  Transmission Date: 20130627
  Serious: Yes (Other)
  Sender: FDA-Public Use
  Company Number: US-ROCHE-1119101

PATIENT
  Sex: Male

DRUGS (5)
  1. XELODA [Suspect]
     Indication: COLON CANCER
     Route: 065
  2. AVASTIN [Suspect]
     Indication: COLON CANCER
     Dosage: x3 doses
     Route: 065
  3. OXALIPLATIN [Suspect]
     Indication: COLON CANCER
  4. LEUCOVORIN [Concomitant]
  5. FLUOROURACIL [Concomitant]

REACTIONS (3)
  - Abdominal wound dehiscence [Unknown]
  - Stomatitis [Unknown]
  - Skin reaction [Unknown]
